FAERS Safety Report 8994600 (Version 1)
Quarter: 2012Q4

REPORT INFORMATION
  Report Type: Spontaneous
  Country: US (occurrence: None)
  Receive Date: 20121229
  Receipt Date: 20121229
  Transmission Date: 20130627
  Serious: Yes (Other)
  Sender: FDA-Public Use
  Company Number: None

PATIENT
  Sex: Male
  Weight: 67.13 kg

DRUGS (1)
  1. ZOLPIDEM [Suspect]
     Indication: INSOMNIA
     Dosage: one nightly po
     Route: 048
     Dates: start: 20121126, end: 20121218

REACTIONS (3)
  - Product substitution issue [None]
  - Product quality issue [None]
  - Insomnia [None]
